FAERS Safety Report 15028249 (Version 1)
Quarter: 2018Q2

REPORT INFORMATION
  Report Type: Spontaneous
  Country: DE (occurrence: DE)
  Receive Date: 20180619
  Receipt Date: 20180619
  Transmission Date: 20180711
  Serious: Yes (Hospitalization)
  Sender: FDA-Public Use
  Company Number: DE-TEVA-2018-DE-911677

PATIENT
  Age: 61 Year
  Sex: Male

DRUGS (10)
  1. MAGNESIUM CITRATE. [Concomitant]
     Active Substance: MAGNESIUM CITRATE
     Dosage: 1-0-1, CHEWABLE TABLET
     Route: 048
  2. MOVICOL [Concomitant]
     Active Substance: POLYETHYLENE GLYCOL 3350\POTASSIUM CHLORIDE\SODIUM BICARBONATE\SODIUM CHLORIDE
     Dosage: 0-1-0, POWDER
     Route: 048
  3. RIFAXIMIN. [Concomitant]
     Active Substance: RIFAXIMIN
     Dosage: 1100 MILLIGRAM DAILY;  1-0-1
     Route: 048
  4. INSULIN [Concomitant]
     Active Substance: INSULIN NOS
     Dosage: 1-0-0, INJECTION/INFUSION SOLUTION
     Route: 058
  5. LACTULOSE. [Concomitant]
     Active Substance: LACTULOSE
     Dosage: 1-1-1, JUICE
     Route: 048
  6. SPIRONOLACTONE. [Concomitant]
     Active Substance: SPIRONOLACTONE
     Dosage: 1-1-0, CAPSULES
     Route: 048
  7. MILGAMMA [Concomitant]
     Active Substance: VITAMIN B
     Dosage: 40|90 MG, 1-0-0, CAPSULE
     Route: 048
  8. PREGABALIN. [Concomitant]
     Active Substance: PREGABALIN
     Dosage: , 2-2-2, CAPSULE
     Route: 048
  9. TORASEMIDE [Suspect]
     Active Substance: TORSEMIDE
     Dosage: 20 MILLIGRAM DAILY;  2-1-0,
     Route: 048
  10. PANTOPRAZOL [Concomitant]
     Active Substance: PANTOPRAZOLE SODIUM
     Dosage: 40 MILLIGRAM DAILY; , 1-0-0,
     Route: 048

REACTIONS (2)
  - Ascites [Unknown]
  - Dyspnoea [Unknown]
